FAERS Safety Report 25787444 (Version 1)
Quarter: 2025Q3

REPORT INFORMATION
  Report Type: Spontaneous
  Country: GB (occurrence: GB)
  Receive Date: 20250910
  Receipt Date: 20250910
  Transmission Date: 20251021
  Serious: Yes (Hospitalization, Other)
  Sender: ROCHE
  Company Number: GB-ROCHE-10000376964

PATIENT
  Sex: Female

DRUGS (1)
  1. HERCEPTIN [Suspect]
     Active Substance: TRASTUZUMAB
     Indication: Breast cancer
     Route: 058
     Dates: end: 20250808

REACTIONS (8)
  - Cough [Unknown]
  - Hypoaesthesia [Unknown]
  - Oedema peripheral [Unknown]
  - Lung disorder [Unknown]
  - Anaemia [Unknown]
  - Transient ischaemic attack [Recovered/Resolved]
  - Heart failure with preserved ejection fraction [Unknown]
  - Product prescribing issue [Unknown]
